FAERS Safety Report 4465453-1 (Version None)
Quarter: 2004Q3

REPORT INFORMATION
  Report Type: 
  Country: None (occurrence: None)
  Receive Date: 20040930
  Receipt Date: 20040914
  Transmission Date: 20050211
  Serious: Yes (Hospitalization)
  Sender: FDA-Public Use
  Company Number: ZANA001347

PATIENT
  Age: 81 Year
  Sex: Female

DRUGS (4)
  1. TIZANIDINE HCL [Suspect]
     Indication: HEADACHE
     Dosage: 3 MG DAILY ORAL
     Route: 048
     Dates: end: 20040810
  2. KETAS (IBUDILAST) [Suspect]
     Dosage: 30 MG DAILY ORAL
     Route: 048
     Dates: end: 20040810
  3. GASMOTIN (MOSAPRIDE CITRATE) [Suspect]
     Dosage: 15 MG DAILY ORAL
     Route: 048
     Dates: end: 20040810
  4. CHINESE MEDICATION [Concomitant]

REACTIONS (8)
  - ALANINE AMINOTRANSFERASE INCREASED [None]
  - ASPARTATE AMINOTRANSFERASE INCREASED [None]
  - BLOOD ALKALINE PHOSPHATASE INCREASED [None]
  - BLOOD LACTATE DEHYDROGENASE INCREASED [None]
  - GAMMA-GLUTAMYLTRANSFERASE INCREASED [None]
  - HYPOAESTHESIA [None]
  - LIVER DISORDER [None]
  - THERAPY NON-RESPONDER [None]
